FAERS Safety Report 9232670 (Version 1)
Quarter: 2013Q2

REPORT INFORMATION
  Report Type: Spontaneous
  Country: US (occurrence: None)
  Receive Date: 20130415
  Receipt Date: 20130415
  Transmission Date: 20140414
  Serious: Yes (Other)
  Sender: FDA-Public Use
  Company Number: None

PATIENT
  Sex: Female

DRUGS (1)
  1. ALPHAGAN P [Suspect]
     Indication: GLAUCOMA
     Dosage: 1 GTT ON
     Dates: start: 1998

REACTIONS (4)
  - Vision blurred [None]
  - Glaucoma [None]
  - Drug ineffective [None]
  - Product substitution issue [None]
